FAERS Safety Report 10233011 (Version 1)
Quarter: 2014Q2

REPORT INFORMATION
  Report Type: Spontaneous
  Country: US (occurrence: US)
  Receive Date: 20140612
  Receipt Date: 20140612
  Transmission Date: 20141212
  Serious: No
  Sender: FDA-Public Use
  Company Number: US-PFIZER INC-2014157428

PATIENT
  Sex: Female

DRUGS (1)
  1. LEVOXYL [Suspect]
     Dosage: 1 DF, DAILY

REACTIONS (9)
  - Hyperhidrosis [Unknown]
  - Heart rate increased [Unknown]
  - Heart rate irregular [Unknown]
  - Thyroxine free decreased [Unknown]
  - Headache [Recovered/Resolved]
  - Nervousness [Unknown]
  - Weight decreased [Unknown]
  - Vomiting [Unknown]
  - Pruritus [Unknown]
